FAERS Safety Report 8219249-5 (Version None)
Quarter: 2012Q1

REPORT INFORMATION
  Report Type: 
  Country: None (occurrence: None)
  Receive Date: 20120319
  Receipt Date: 20120306
  Transmission Date: 20120608
  Serious: Yes (Hospitalization, Other)
  Sender: FDA-Public Use
  Company Number: AU-ELI_LILLY_AND_COMPANY-AU201112000784

PATIENT
  Sex: Female
  Weight: 3.069 kg

DRUGS (8)
  1. CYMBALTA [Suspect]
     Dosage: 60 MG, QD
     Route: 064
  2. ORAL CONTRACEPTIVE NOS [Concomitant]
  3. CYMBALTA [Suspect]
     Route: 063
  4. ELEVIT [Concomitant]
  5. CYMBALTA [Suspect]
     Route: 063
  6. ELEVIT [Concomitant]
  7. ORAL CONTRACEPTIVE NOS [Concomitant]
  8. CYMBALTA [Suspect]
     Dosage: 60 MG, QD
     Route: 064

REACTIONS (5)
  - BLOOD BILIRUBIN INCREASED [None]
  - PREMATURE BABY [None]
  - FOETAL EXPOSURE DURING PREGNANCY [None]
  - HYPOGLYCAEMIA [None]
  - EXPOSURE DURING BREAST FEEDING [None]
